FAERS Safety Report 8165724-1 (Version None)
Quarter: 2012Q1

REPORT INFORMATION
  Report Type: 
  Country: None (occurrence: None)
  Receive Date: 20120227
  Receipt Date: 20110131
  Transmission Date: 20120608
  Serious: No
  Sender: FDA-Public Use
  Company Number: US-MYLANLABS-2011S1000543

PATIENT
  Age: 36 Year
  Sex: Male
  Weight: 102.06 kg

DRUGS (5)
  1. AMNESTEEM [Suspect]
     Route: 048
     Dates: start: 20101113, end: 20101210
  2. ZOCOR [Concomitant]
  3. AMNESTEEM [Suspect]
     Indication: ACNE
     Route: 048
     Dates: start: 20100712, end: 20101018
  4. IMITREX [Concomitant]
     Indication: HEADACHE
     Route: 058
  5. AMNESTEEM [Suspect]
     Route: 048
     Dates: start: 20101018, end: 20101113

REACTIONS (3)
  - MIGRAINE [None]
  - NAUSEA [None]
  - VOMITING [None]
